FAERS Safety Report 4945215-9 (Version None)
Quarter: 2006Q1

REPORT INFORMATION
  Report Type: 
  Country: None (occurrence: None)
  Receive Date: 20060316
  Receipt Date: 20040708
  Transmission Date: 20060701
  Serious: Yes (Life-Threatening)
  Sender: FDA-Public Use
  Company Number: PHNU2004SI02424

PATIENT
  Age: 59 Year
  Sex: Male
  Weight: 75 kg

DRUGS (3)
  1. CIPRAMIL [Suspect]
     Dosage: 280 MG/ONCE SINGLE
     Route: 048
     Dates: start: 20040703, end: 20040703
  2. HELEX [Suspect]
     Dosage: UNKNOWN
     Route: 048
     Dates: start: 20040703, end: 20040703
  3. EXELON [Suspect]
     Dosage: 288 MG, ONCE/SINGLE
     Route: 048
     Dates: start: 20040703, end: 20040703

REACTIONS (31)
  - APNOEA [None]
  - ASPIRATION TRACHEAL [None]
  - BLOOD CHOLINESTERASE DECREASED [None]
  - BLOOD GLUCOSE INCREASED [None]
  - BLOOD POTASSIUM DECREASED [None]
  - BODY TEMPERATURE DECREASED [None]
  - BRADYCARDIA [None]
  - COMA [None]
  - CONVULSION [None]
  - DIARRHOEA [None]
  - DIZZINESS [None]
  - EXTUBATION [None]
  - FATIGUE [None]
  - GASTRIC LAVAGE [None]
  - HYPERTENSION [None]
  - HYPOVENTILATION [None]
  - INCREASED BRONCHIAL SECRETION [None]
  - INTENTIONAL OVERDOSE [None]
  - INTUBATION [None]
  - LIFE SUPPORT [None]
  - LOSS OF CONSCIOUSNESS [None]
  - MIOSIS [None]
  - NYSTAGMUS [None]
  - OXYGEN SATURATION DECREASED [None]
  - RALES [None]
  - RESPIRATORY DEPRESSION [None]
  - RESPIRATORY FAILURE [None]
  - SALIVARY HYPERSECRETION [None]
  - SINUS TACHYCARDIA [None]
  - SOMNOLENCE [None]
  - VOMITING [None]
